FAERS Safety Report 7341898-7 (Version None)
Quarter: 2011Q1

REPORT INFORMATION
  Report Type: 
  Country: None (occurrence: None)
  Receive Date: 20110309
  Receipt Date: 20110302
  Transmission Date: 20110831
  Serious: Yes (Hospitalization)
  Sender: FDA-Public Use
  Company Number: GB-AMGEN-GBRCT2011012005

PATIENT
  Age: 41 Year
  Sex: Female

DRUGS (9)
  1. DOMPERIDONE [Concomitant]
     Dosage: 10 MG, UNK
  2. PANITUMUMAB [Suspect]
     Indication: GASTRIC CANCER
     Dosage: UNK
     Dates: start: 20110211, end: 20110211
  3. CAPECITABINE [Concomitant]
     Dosage: UNK
     Dates: start: 20110211
  4. EPIRUBICIN [Concomitant]
     Dosage: UNK
     Dates: start: 20110211
  5. OXALIPLATIN [Concomitant]
     Dosage: UNK
     Dates: start: 20110211
  6. ZOPLICONE [Concomitant]
     Dosage: 7.5 MG, UNK
  7. SPIRONOLACTONE [Concomitant]
     Dosage: 50 MG, QD
  8. MST [Concomitant]
     Dosage: 100 MG, BID
  9. CYCLIZINE [Concomitant]
     Dosage: 50 MG, UNK

REACTIONS (1)
  - NEUTROPENIC SEPSIS [None]
